FAERS Safety Report 9704711 (Version 2)
Quarter: 2014Q1

REPORT INFORMATION
  Report Type: Spontaneous
  Country: JP (occurrence: JP)
  Receive Date: 20131122
  Receipt Date: 20140203
  Transmission Date: 20141002
  Serious: Yes (Hospitalization)
  Sender: FDA-Public Use
  Company Number: JP-B.I. PHARMACEUTICALS,INC./RIDGEFIELD-2013-BI-37801NB

PATIENT
  Age: 66 Year
  Sex: Male

DRUGS (3)
  1. TWYNSTA [Suspect]
     Indication: HYPERTENSION
     Dosage: 1 ANZ
     Route: 048
     Dates: start: 201310
  2. OTSUJITO [Concomitant]
     Route: 048
  3. EXFORGE [Concomitant]
     Indication: HYPERTENSION
     Dates: end: 201310

REACTIONS (1)
  - Interstitial lung disease [Unknown]
